FAERS Safety Report 6905538-0 (Version None)
Quarter: 2010Q3

REPORT INFORMATION
  Report Type: 
  Country: None (occurrence: None)
  Receive Date: 20100804
  Receipt Date: 20100726
  Transmission Date: 20110219
  Serious: Yes (Other)
  Sender: FDA-Public Use
  Company Number: DE-PFIZER INC-2010093114

PATIENT
  Age: 27 Year
  Sex: Female

DRUGS (1)
  1. DEPO-CLINOVIR [Suspect]
     Dosage: 1 DF, EVERY 3 MONTHS
     Route: 030
     Dates: start: 20000101, end: 20091001

REACTIONS (1)
  - TREMOR [None]
